FAERS Safety Report 7766976-X (Version None)
Quarter: 2011Q3

REPORT INFORMATION
  Report Type: 
  Country: None (occurrence: None)
  Receive Date: 20110922
  Receipt Date: 20110914
  Transmission Date: 20111222
  Serious: Yes (Other)
  Sender: FDA-Public Use
  Company Number: PHEH2011US04163

PATIENT

DRUGS (1)
  1. AREDIA [Suspect]
     Indication: OSTEOPENIA
     Dosage: UNK UKN, UNK

REACTIONS (2)
  - QUALITY OF LIFE DECREASED [None]
  - OSTEONECROSIS [None]
